FAERS Safety Report 24663433 (Version 2)
Quarter: 2025Q4

REPORT INFORMATION
  Report Type: Spontaneous
  Country: US (occurrence: US)
  Receive Date: 20241126
  Receipt Date: 20251125
  Transmission Date: 20260118
  Serious: No
  Sender: AUROBINDO
  Company Number: US-AUROBINDO-AUR-APL-2024-049292

PATIENT
  Age: 71 Year
  Sex: Female
  Weight: 81 kg

DRUGS (4)
  1. FLUCONAZOLE [Suspect]
     Active Substance: FLUCONAZOLE
     Indication: Fungal skin infection
     Dosage: UNK, EVERY WEEK
     Dates: start: 20240905
  2. FLUCONAZOLE [Suspect]
     Active Substance: FLUCONAZOLE
     Dosage: UNK, EVERY WEEK
     Dates: start: 20240912
  3. FLUCONAZOLE [Suspect]
     Active Substance: FLUCONAZOLE
     Dosage: UNK, EVERY WEEK
     Dates: start: 20240919
  4. SINGULAIR [Concomitant]
     Active Substance: MONTELUKAST SODIUM
     Indication: Product used for unknown indication
     Dosage: UNK
     Route: 065

REACTIONS (1)
  - Dizziness [Unknown]
